FAERS Safety Report 18367778 (Version 1)
Quarter: 2020Q4

REPORT INFORMATION
  Report Type: Report from Study
  Country: CA (occurrence: CA)
  Receive Date: 20201009
  Receipt Date: 20201009
  Transmission Date: 20210114
  Serious: Yes (Other)
  Sender: FDA-Public Use
  Company Number: CA-JNJFOC-20201002601

PATIENT
  Age: 23 Year
  Sex: Female
  Weight: 61.29 kg

DRUGS (1)
  1. STELARA [Suspect]
     Active Substance: USTEKINUMAB
     Indication: CROHN^S DISEASE
     Route: 058
     Dates: start: 20150501

REACTIONS (2)
  - Skin laceration [Unknown]
  - Arthritis infective [Recovered/Resolved]

NARRATIVE: CASE EVENT DATE: 20200911
